FAERS Safety Report 6901019-9 (Version None)
Quarter: 2010Q3

REPORT INFORMATION
  Report Type: 
  Country: None (occurrence: None)
  Receive Date: 20100803
  Receipt Date: 20100730
  Transmission Date: 20110219
  Serious: Yes (Other)
  Sender: FDA-Public Use
  Company Number: US-MYLANLABS-2010S1013647

PATIENT
  Sex: Female

DRUGS (4)
  1. AMNESTEEM [Suspect]
     Dates: start: 20100122
  2. CLARAVIS [Suspect]
  3. CLARAVIS [Suspect]
  4. AMNESTEEM [Suspect]

REACTIONS (1)
  - DRUG EXPOSURE DURING PREGNANCY [None]
